FAERS Safety Report 6970246-7 (Version None)
Quarter: 2010Q3

REPORT INFORMATION
  Report Type: 
  Country: None (occurrence: None)
  Receive Date: 20100908
  Receipt Date: 20100826
  Transmission Date: 20110219
  Serious: Yes (Hospitalization, Other)
  Sender: FDA-Public Use
  Company Number: PHHY2010DE27477

PATIENT
  Sex: Male

DRUGS (8)
  1. RASILEZ [Suspect]
     Indication: HYPERTENSION
     Dosage: 150 MG/D
     Dates: start: 20100201
  2. MARCUMAR [Suspect]
  3. RAMIPRIL [Concomitant]
     Indication: HYPERTENSION
     Dosage: 2 DF /D
  4. METOPROLOL TARTRATE [Concomitant]
     Indication: HYPERTENSION
     Dosage: 1 DF BID
  5. NITRENDIPIN [Concomitant]
     Indication: HYPERTENSION
     Dosage: 1 DF BID
  6. PENTAERYTHRITOL TETRANITRATE [Concomitant]
     Indication: HYPERTENSION
     Dosage: 1 DF BID
  7. PANTOPRAZOLE SODIUM [Concomitant]
     Indication: HYPERTENSION
     Dosage: 40 MG EVERY THIRD DAY
  8. DIURETICS [Concomitant]
     Indication: HYPERTENSION
     Dosage: UNK

REACTIONS (5)
  - HAEMORRHAGE [None]
  - HAEMORRHAGIC DIATHESIS [None]
  - HYPOVOLAEMIA [None]
  - LUNG NEOPLASM MALIGNANT [None]
  - RENAL FAILURE [None]
